FAERS Safety Report 5818213-0 (Version None)
Quarter: 2008Q3

REPORT INFORMATION
  Report Type: 
  Country: None (occurrence: None)
  Receive Date: 20080716
  Receipt Date: 20080703
  Transmission Date: 20090109
  Serious: No
  Sender: FDA-Public Use
  Company Number: 2008-180294-NL

PATIENT
  Age: 67 Year
  Sex: Female

DRUGS (6)
  1. MIRTAZAPINE [Suspect]
     Dosage: 30 MG
  2. ATENOLOL [Concomitant]
  3. ESTROPIPATE [Concomitant]
  4. LEVOTHYROXINE SODIUM [Concomitant]
  5. NORETHINDRONE ACETATE [Concomitant]
  6. LANSOPRAZOLE [Concomitant]

REACTIONS (5)
  - EYELID OEDEMA [None]
  - HEADACHE [None]
  - HEART RATE INCREASED [None]
  - HYPERHIDROSIS [None]
  - INSOMNIA [None]
